FAERS Safety Report 8354013-8 (Version None)
Quarter: 2012Q2

REPORT INFORMATION
  Report Type: 
  Country: None (occurrence: None)
  Receive Date: 20120511
  Receipt Date: 20120507
  Transmission Date: 20120825
  Serious: Yes (Life-Threatening, Hospitalization, Congenital Anomaly)
  Sender: FDA-Public Use
  Company Number: DE-PFIZER INC-2012110489

PATIENT
  Sex: Female

DRUGS (4)
  1. SERTRALINE HYDROCHLORIDE [Suspect]
     Indication: DEPRESSION
     Dosage: 100 MG, DAILY
     Route: 064
     Dates: start: 20110331, end: 20110816
  2. SERTRALINE HYDROCHLORIDE [Suspect]
     Dosage: 150 MG, DAILY
     Route: 064
     Dates: end: 20110930
  3. FOLIC ACID [Concomitant]
     Indication: PROPHYLAXIS OF NEURAL TUBE DEFECT
     Dosage: UNK
     Route: 064
     Dates: start: 20110331, end: 20110930
  4. BETAMETHASONE [Concomitant]
     Indication: PREMATURE LABOUR
     Dosage: 12 MG, DAILY
     Route: 064
     Dates: start: 20110930, end: 20110930

REACTIONS (4)
  - PREMATURE BABY [None]
  - PATENT DUCTUS ARTERIOSUS [None]
  - MATERNAL EXPOSURE TIMING UNSPECIFIED [None]
  - VENTRICULAR SEPTAL DEFECT [None]
